FAERS Safety Report 5767321-1 (Version None)
Quarter: 2008Q2

REPORT INFORMATION
  Report Type: 
  Country: None (occurrence: None)
  Receive Date: 20080612
  Receipt Date: 20080603
  Transmission Date: 20081010
  Serious: Yes (Life-Threatening, Hospitalization, Other)
  Sender: FDA-Public Use
  Company Number: GB-BRISTOL-MYERS SQUIBB COMPANY-14222863

PATIENT
  Age: 14 Year
  Sex: Male

DRUGS (8)
  1. CYCLOPHOSPHAMIDE [Suspect]
     Indication: B-CELL LYMPHOMA
     Route: 065
     Dates: start: 19970101
  2. DOXORUBICIN HCL [Suspect]
     Indication: B-CELL LYMPHOMA
     Route: 065
     Dates: start: 19970101
  3. VINCRISTINE SULFATE [Suspect]
     Indication: B-CELL LYMPHOMA
     Route: 065
     Dates: start: 19970101
  4. CYTARABINE [Suspect]
     Indication: B-CELL LYMPHOMA
     Route: 065
     Dates: start: 19970101
  5. METHOTREXATE [Suspect]
     Indication: B-CELL LYMPHOMA
     Route: 065
     Dates: start: 19970101
  6. PREDNISOLONE [Suspect]
     Indication: B-CELL LYMPHOMA
     Route: 065
     Dates: start: 19970101
  7. MESNA [Concomitant]
     Indication: PROPHYLAXIS
     Dates: start: 19970101
  8. ANTIHYPERTENSIVE [Concomitant]

REACTIONS (5)
  - BLADDER TELANGIECTASIA [None]
  - HAEMATURIA [None]
  - NOCTURIA [None]
  - POLLAKIURIA [None]
  - RENAL FAILURE [None]
